FAERS Safety Report 16840881 (Version 1)
Quarter: 2019Q3

REPORT INFORMATION
  Report Type: Spontaneous
  Country: US (occurrence: US)
  Receive Date: 20190731
  Receipt Date: 20190731
  Transmission Date: 20191005
  Serious: No
  Sender: FDA-Public Use
  Company Number: None

PATIENT
  Age: 81 Year
  Sex: Female
  Weight: 65.77 kg

DRUGS (15)
  1. CLONAZEPAM 1MG [Suspect]
     Active Substance: CLONAZEPAM
     Indication: SEIZURE
     Dosage: ?          QUANTITY:1 PILL 9PM;?
     Route: 048
     Dates: start: 2018
  2. CLONAZEPAM 1MG [Suspect]
     Active Substance: CLONAZEPAM
     Indication: PAIN IN EXTREMITY
     Dosage: ?          QUANTITY:1 PILL 9PM;?
     Route: 048
     Dates: start: 2018
  3. FISH OIL [Concomitant]
     Active Substance: FISH OIL
  4. HYDROCHLOROTHIAZIDE. [Concomitant]
     Active Substance: HYDROCHLOROTHIAZIDE
  5. SOOTHE EYE DROPS [Concomitant]
  6. CLONAZEPAM 1MG [Suspect]
     Active Substance: CLONAZEPAM
     Indication: SLEEP DEFICIT
     Dosage: ?          QUANTITY:1 PILL 9PM;?
     Route: 048
     Dates: start: 2018
  7. CALCIUM [Concomitant]
     Active Substance: CALCIUM
  8. CLONAZEPAM 1MG [Suspect]
     Active Substance: CLONAZEPAM
     Indication: RESTLESS LEGS SYNDROME
     Dosage: ?          QUANTITY:1 PILL 9PM;?
     Route: 048
     Dates: start: 2018
  9. CLONAZEPAM 1MG [Suspect]
     Active Substance: CLONAZEPAM
     Indication: INSOMNIA
     Dosage: ?          QUANTITY:1 PILL 9PM;?
     Route: 048
     Dates: start: 2018
  10. CARVEDILOL. [Concomitant]
     Active Substance: CARVEDILOL
  11. COUMADIN [Concomitant]
     Active Substance: WARFARIN SODIUM
  12. AREDS 2 [Concomitant]
     Active Substance: MINERALS\VITAMINS
  13. TYLENOL [Concomitant]
     Active Substance: ACETAMINOPHEN
  14. CLONAZEPAM 1MG [Suspect]
     Active Substance: CLONAZEPAM
     Indication: SUICIDAL IDEATION
     Dosage: ?          QUANTITY:1 PILL 9PM;?
     Route: 048
     Dates: start: 2018
  15. ISOSORBIDE MONINITRATE [Concomitant]

REACTIONS (5)
  - Restless legs syndrome [None]
  - Product substitution issue [None]
  - Pain in extremity [None]
  - Seizure [None]
  - Pain [None]

NARRATIVE: CASE EVENT DATE: 20190721
